FAERS Safety Report 8378517-7 (Version None)
Quarter: 2012Q2

REPORT INFORMATION
  Report Type: 
  Country: None (occurrence: None)
  Receive Date: 20120522
  Receipt Date: 20120515
  Transmission Date: 20120825
  Serious: Yes (Other)
  Sender: FDA-Public Use
  Company Number: GB-B.I. PHARMACEUTICALS,INC./RIDGEFIELD-2012-BP-10813BP

PATIENT

DRUGS (2)
  1. VIRAMUNE [Suspect]
     Indication: MATERNAL EXPOSURE DURING PREGNANCY
     Route: 064
  2. EPZICOM [Concomitant]
     Indication: MATERNAL EXPOSURE DURING PREGNANCY
     Route: 064
     Dates: start: 20101213

REACTIONS (3)
  - MENINGOMYELOCELE [None]
  - CEREBRAL VENTRICLE DILATATION [None]
  - NEURAL TUBE DEFECT [None]
